FAERS Safety Report 22518099 (Version 1)
Quarter: 2023Q2

REPORT INFORMATION
  Report Type: Spontaneous
  Country: SI (occurrence: SI)
  Receive Date: 20230605
  Receipt Date: 20230605
  Transmission Date: 20230721
  Serious: Yes (Other)
  Sender: FDA-Public Use
  Company Number: SI-ROCHE-3354618

PATIENT
  Age: 70 Year
  Sex: Male
  Weight: 62 kg

DRUGS (6)
  1. BEVACIZUMAB [Suspect]
     Active Substance: BEVACIZUMAB
     Indication: Hepatocellular carcinoma
     Route: 065
     Dates: start: 20221027
  2. ATEZOLIZUMAB [Suspect]
     Active Substance: ATEZOLIZUMAB
     Indication: Hepatocellular carcinoma
     Dosage: 1200 MILLIGRAM
     Route: 042
     Dates: start: 20221027
  3. XARELTO [Concomitant]
     Active Substance: RIVAROXABAN
     Dosage: UNK, QD
     Dates: start: 20210506
  4. AMLODIPINE\PERINDOPRIL [Concomitant]
     Active Substance: AMLODIPINE\PERINDOPRIL
  5. ACETAMINOPHEN [Concomitant]
     Active Substance: ACETAMINOPHEN
     Dates: start: 20230130, end: 20230130
  6. CLEMASTINE FUMARATE [Concomitant]
     Active Substance: CLEMASTINE FUMARATE
     Dates: start: 20230130, end: 20230130

REACTIONS (2)
  - Prostate infection [Recovered/Resolved]
  - Off label use [Unknown]

NARRATIVE: CASE EVENT DATE: 20230218
